FAERS Safety Report 9335570 (Version 6)
Quarter: 2013Q4

REPORT INFORMATION
  Report Type: Report from Study
  Country: DE (occurrence: DE)
  Receive Date: 20130605
  Receipt Date: 20131001
  Transmission Date: 20140711
  Serious: Yes (Other)
  Sender: FDA-Public Use
  Company Number: DE-GLAXOSMITHKLINE-Z0019860A

PATIENT
  Age: 53 Year
  Sex: Male

DRUGS (7)
  1. FLUTICASONE FUROATE + VILANTEROL TRIFENATATE [Suspect]
     Indication: CHRONIC OBSTRUCTIVE PULMONARY DISEASE
     Route: 055
     Dates: start: 20130301, end: 20130527
  2. QUETIAPINE [Concomitant]
     Indication: INSOMNIA
     Dosage: 100MG PER DAY
     Route: 048
     Dates: start: 2010, end: 20130527
  3. SIMVASTATIN [Concomitant]
     Indication: HYPERLIPIDAEMIA
     Dosage: 10MG PER DAY
     Route: 048
     Dates: start: 2011, end: 20130527
  4. RAMIPRIL [Concomitant]
     Dosage: 5MG PER DAY
     Route: 048
     Dates: start: 2001, end: 20130527
  5. AMLODIPIN [Concomitant]
     Dosage: 5MG PER DAY
     Route: 048
     Dates: start: 2009, end: 20130527
  6. METFORMIN [Concomitant]
     Indication: DIABETES MELLITUS
     Dosage: 500MG TWICE PER DAY
     Route: 048
     Dates: start: 201103, end: 20130527
  7. ASS [Concomitant]
     Dosage: 100MG PER DAY
     Route: 048
     Dates: start: 20130313, end: 20130523

REACTIONS (1)
  - Hepatic enzyme increased [Recovered/Resolved]
